FAERS Safety Report 24624727 (Version 2)
Quarter: 2024Q4

REPORT INFORMATION
  Report Type: Spontaneous
  Country: US (occurrence: US)
  Receive Date: 20241115
  Receipt Date: 20241219
  Transmission Date: 20250115
  Serious: No
  Sender: NOVARTIS
  Company Number: US-002147023-NVSC2024US220544

PATIENT
  Age: 67 Year
  Sex: Female
  Weight: 81 kg

DRUGS (11)
  1. LEQVIO [Suspect]
     Active Substance: INCLISIRAN SODIUM
     Indication: Low density lipoprotein increased
     Dosage: 284 MG (EVERY SIX MONTHS)
     Route: 058
     Dates: start: 20240208
  2. LEQVIO [Suspect]
     Active Substance: INCLISIRAN SODIUM
     Indication: Hyperlipidaemia
     Dosage: UNK
     Route: 058
     Dates: start: 20240802
  3. LEQVIO [Suspect]
     Active Substance: INCLISIRAN SODIUM
     Indication: Arteriosclerosis coronary artery
     Dosage: UNK
     Route: 058
     Dates: start: 20241005
  4. LEQVIO [Suspect]
     Active Substance: INCLISIRAN SODIUM
     Dosage: UNK
     Route: 058
     Dates: start: 20240611
  5. ASPIRIN [Concomitant]
     Active Substance: ASPIRIN
     Indication: Product used for unknown indication
     Dosage: 1 DOSAGE FORM, QD (CHEW AND SWALLOW 1 TABLET DAILY)
     Route: 048
     Dates: start: 20240823
  6. CARVEDILOL [Concomitant]
     Active Substance: CARVEDILOL
     Indication: Product used for unknown indication
     Dosage: 1 DOSAGE FORM (TAKE 1 TABLET TWICE DAILY WITH MEALS)
     Route: 048
     Dates: start: 20241106
  7. KETOROLAC TROMETHAMINE [Concomitant]
     Active Substance: KETOROLAC TROMETHAMINE
     Indication: Product used for unknown indication
     Dosage: UNK (OPTHALMIC SOLUTION, INSTILL ONE DROP IN BOTH EYES EVERY MORNING AS NEEDED)
     Route: 047
     Dates: start: 20230711
  8. LEVOTHYROXINE SODIUM [Concomitant]
     Active Substance: LEVOTHYROXINE SODIUM
     Indication: Product used for unknown indication
     Dosage: UNK (TAKE 1 TABLET DAILY TAKE ON EMPTY STOMACH , FIRST THING IN MORNING, WITHOUT ANY OTHER FOOD OR M
     Route: 048
     Dates: start: 20240412
  9. LIOTHYRONINE SODIUM [Concomitant]
     Active Substance: LIOTHYRONINE SODIUM
     Indication: Product used for unknown indication
     Dosage: 1 DOSAGE FORM, BID
     Route: 048
     Dates: start: 20240313
  10. MOMETASONE FUROATE [Concomitant]
     Active Substance: MOMETASONE FUROATE
     Indication: Product used for unknown indication
     Dosage: UNK (APPLY SPARINGLY TO AFFECTED AREA (S) TWICE DAILY AS NEEDED FOR ITCHING)
     Route: 065
     Dates: start: 20240708
  11. OXYCODONE HYDROCHLORIDE [Concomitant]
     Active Substance: OXYCODONE HYDROCHLORIDE
     Indication: Product used for unknown indication
     Dosage: UNK
     Route: 048
     Dates: start: 20240903

REACTIONS (6)
  - Injection site erythema [Recovered/Resolved]
  - Injection site inflammation [Recovered/Resolved]
  - Injection site mass [Recovering/Resolving]
  - Injection site pruritus [Unknown]
  - Injection site pain [Unknown]
  - Injection site warmth [Unknown]

NARRATIVE: CASE EVENT DATE: 20241005
